FAERS Safety Report 10404728 (Version 1)
Quarter: 2014Q3

REPORT INFORMATION
  Report Type: Other
  Country: FR (occurrence: FR)
  Receive Date: 20140824
  Receipt Date: 20140824
  Transmission Date: 20150326
  Serious: Yes (Hospitalization)
  Sender: FDA-Public Use
  Company Number: FR-MYLANLABS-2014M1001798

PATIENT

DRUGS (11)
  1. CLAMOXYL                           /00249601/ [Suspect]
     Active Substance: AMOXICILLIN\CLAVULANIC ACID
     Dosage: UNK
     Route: 042
     Dates: start: 20071025, end: 20071104
  2. PIPERACILLIN SODIUM [Suspect]
     Active Substance: PIPERACILLIN SODIUM
     Dosage: UNK
     Route: 042
     Dates: start: 20071106, end: 20071109
  3. CAFFEINE CITRATE. [Suspect]
     Active Substance: CAFFEINE CITRATE
     Dosage: UNK
     Route: 042
     Dates: start: 20071105, end: 20071120
  4. VENTOLIN [Suspect]
     Active Substance: ALBUTEROL SULFATE
     Dosage: UNK
     Route: 055
     Dates: start: 20071024
  5. PERFALGAN [Suspect]
     Active Substance: ACETAMINOPHEN
     Dosage: 14.8 MG, UNK
     Route: 042
     Dates: start: 20071027
  6. AMIKACIN SULFATE. [Suspect]
     Active Substance: AMIKACIN SULFATE
     Dosage: UNK
     Route: 042
     Dates: start: 20071106, end: 20071108
  7. L THYROXINE [Suspect]
     Active Substance: LEVOTHYROXINE SODIUM
     Dosage: UNK
     Route: 048
     Dates: start: 20071031
  8. VANCOMYCIN [Suspect]
     Active Substance: VANCOMYCIN
     Dosage: UNK
     Route: 042
     Dates: start: 20071106
  9. CLAFORAN [Suspect]
     Active Substance: CEFOTAXIME SODIUM
     Dosage: UNK
     Route: 042
     Dates: start: 20071025, end: 20071104
  10. FENTANYL. [Suspect]
     Active Substance: FENTANYL
     Dosage: UNK
     Route: 042
     Dates: start: 20071105, end: 20071120
  11. FLIXOTIDE [Suspect]
     Active Substance: FLUTICASONE PROPIONATE
     Dosage: UNK
     Route: 055
     Dates: start: 20071024

REACTIONS (1)
  - Thrombocytopenia [Not Recovered/Not Resolved]

NARRATIVE: CASE EVENT DATE: 20071111
